FAERS Safety Report 8354445-8 (Version None)
Quarter: 2012Q2

REPORT INFORMATION
  Report Type: 
  Country: None (occurrence: None)
  Receive Date: 20120511
  Receipt Date: 20120430
  Transmission Date: 20120825
  Serious: Yes (Other)
  Sender: FDA-Public Use
  Company Number: US-ROCHE-1064725

PATIENT
  Age: 45 Year
  Sex: Female
  Weight: 68.1 kg

DRUGS (3)
  1. CARBOPLATIN [Concomitant]
     Route: 042
     Dates: end: 20111201
  2. TAXOTERE [Concomitant]
     Indication: BREAST CANCER
     Route: 042
     Dates: end: 20111201
  3. HERCEPTIN [Suspect]
     Indication: BREAST CANCER
     Dosage: UNKNOWN
     Route: 042
     Dates: start: 20110901

REACTIONS (5)
  - MYALGIA [None]
  - FATIGUE [None]
  - PAIN [None]
  - BURNS THIRD DEGREE [None]
  - BURNS SECOND DEGREE [None]
